FAERS Safety Report 25273582 (Version 1)
Quarter: 2025Q2

REPORT INFORMATION
  Report Type: Spontaneous
  Country: US (occurrence: None)
  Receive Date: 20250505
  Receipt Date: 20250505
  Transmission Date: 20250716
  Serious: Yes (Death)
  Sender: FDA-CTU
  Company Number: None

PATIENT
  Age: 66 Year
  Sex: Male

DRUGS (1)
  1. PIRFENIDONE [Suspect]
     Active Substance: PIRFENIDONE
     Indication: Idiopathic pulmonary fibrosis
     Dosage: 267MG TID ORAL
     Route: 048
     Dates: start: 20230411, end: 20230629

REACTIONS (4)
  - Pneumonia [None]
  - Pneumothorax [None]
  - Haemodynamic instability [None]
  - Condition aggravated [None]

NARRATIVE: CASE EVENT DATE: 20230629
